FAERS Safety Report 21708057 (Version 1)
Quarter: 2022Q4

REPORT INFORMATION
  Report Type: Spontaneous
  Country: FR (occurrence: FR)
  Receive Date: 20221209
  Receipt Date: 20221209
  Transmission Date: 20230112
  Serious: Yes (Life-Threatening)
  Sender: FDA-Public Use
  Company Number: FR-ANIPHARMA-2022-FR-000244

PATIENT
  Age: 61 Year
  Sex: Female

DRUGS (2)
  1. ARIMIDEX [Suspect]
     Active Substance: ANASTROZOLE
     Indication: Breast cancer metastatic
     Route: 048
     Dates: start: 20220629, end: 20220707
  2. KISQALI [Suspect]
     Active Substance: RIBOCICLIB
     Route: 065
     Dates: start: 20220629, end: 20220707

REACTIONS (1)
  - Hepatic cytolysis [Recovered/Resolved]

NARRATIVE: CASE EVENT DATE: 20220901
